FAERS Safety Report 4612949-5 (Version None)
Quarter: 2005Q1

REPORT INFORMATION
  Report Type: 
  Country: None (occurrence: None)
  Receive Date: 20050318
  Receipt Date: 20050309
  Transmission Date: 20050727
  Serious: Yes (Disabling)
  Sender: FDA-Public Use
  Company Number: US-ROCHE-398241

PATIENT
  Sex: Male

DRUGS (1)
  1. ACCUTANE [Suspect]
     Indication: ACNE
     Route: 048

REACTIONS (11)
  - AFFECT LABILITY [None]
  - AGGRESSION [None]
  - AGITATION [None]
  - ANGER [None]
  - DELIRIUM [None]
  - DEPRESSION [None]
  - GASTROINTESTINAL DISORDER [None]
  - IMPULSE-CONTROL DISORDER [None]
  - IMPULSIVE BEHAVIOUR [None]
  - SUICIDAL IDEATION [None]
  - SUICIDE ATTEMPT [None]
